FAERS Safety Report 7112418-7 (Version None)
Quarter: 2010Q4

REPORT INFORMATION
  Report Type: 
  Country: None (occurrence: None)
  Receive Date: 20101119
  Receipt Date: 20101027
  Transmission Date: 20110411
  Serious: No
  Sender: FDA-Public Use
  Company Number: A0889110A

PATIENT
  Age: 56 Year
  Sex: Male

DRUGS (4)
  1. AVODART [Suspect]
     Indication: BENIGN PROSTATIC HYPERPLASIA
     Dosage: .5MG PER DAY
     Route: 048
     Dates: start: 20071001
  2. PROZAC [Suspect]
  3. LISINOPRIL [Concomitant]
  4. TESTOSTERONE [Concomitant]

REACTIONS (1)
  - HEADACHE [None]
